FAERS Safety Report 15767747 (Version 5)
Quarter: 2019Q1

REPORT INFORMATION
  Report Type: Spontaneous
  Country: US (occurrence: US)
  Receive Date: 20181227
  Receipt Date: 20190228
  Transmission Date: 20190417
  Serious: Yes (Other)
  Sender: FDA-Public Use
  Company Number: US-BIOGEN-2018BI00674471

PATIENT
  Age: 53 Year
  Sex: Female
  Weight: 69.46 kg

DRUGS (4)
  1. FLOMAX [Suspect]
     Active Substance: TAMSULOSIN HYDROCHLORIDE
     Indication: MICTURITION URGENCY
     Route: 048
  2. TYSABRI [Suspect]
     Active Substance: NATALIZUMAB
     Indication: MULTIPLE SCLEROSIS
     Dosage: INFUSED OVER 1 HOUR
     Route: 042
     Dates: start: 201306
  3. D2000 [Concomitant]
     Indication: PRODUCT USED FOR UNKNOWN INDICATION
     Route: 048
  4. AMPYRA [Suspect]
     Active Substance: DALFAMPRIDINE
     Indication: PRODUCT USED FOR UNKNOWN INDICATION
     Route: 065

REACTIONS (14)
  - Insomnia [Unknown]
  - Vitamin B12 deficiency [Unknown]
  - Syncope [Recovered/Resolved]
  - Carpal tunnel syndrome [Unknown]
  - Multiple sclerosis relapse [Recovered/Resolved]
  - Dizziness [Unknown]
  - Muscle spasms [Unknown]
  - Polyneuropathy [Unknown]
  - Anxiety [Unknown]
  - Folate deficiency [Unknown]
  - Depression [Unknown]
  - Restless legs syndrome [Unknown]
  - Carotid artery stenosis [Unknown]
  - Multiple sclerosis relapse [Unknown]

NARRATIVE: CASE EVENT DATE: 201410
